FAERS Safety Report 20593997 (Version 2)
Quarter: 2022Q2

REPORT INFORMATION
  Report Type: Spontaneous
  Country: US (occurrence: US)
  Receive Date: 20220315
  Receipt Date: 20220401
  Transmission Date: 20220721
  Serious: Yes (Hospitalization, Other)
  Sender: FDA-Public Use
  Company Number: US-BEH-2022142983

PATIENT
  Age: 32 Year
  Sex: Male

DRUGS (6)
  1. IDELVION [Suspect]
     Active Substance: COAGULATION FACTOR IX RECOMBINANT HUMAN
     Indication: Factor IX deficiency
     Dosage: 3550 INTERNATIONAL UNIT, QW
     Route: 042
     Dates: start: 20211004
  2. IDELVION [Suspect]
     Active Substance: COAGULATION FACTOR IX RECOMBINANT HUMAN
     Indication: Factor IX deficiency
     Dosage: 3550 INTERNATIONAL UNIT, QW
     Route: 042
     Dates: start: 20211004
  3. IDELVION [Suspect]
     Active Substance: COAGULATION FACTOR IX RECOMBINANT HUMAN
     Dosage: 3550 INTERNATIONAL UNIT, PRN
     Route: 042
     Dates: start: 20211004
  4. IDELVION [Suspect]
     Active Substance: COAGULATION FACTOR IX RECOMBINANT HUMAN
     Dosage: 3550 INTERNATIONAL UNIT, PRN
     Route: 042
     Dates: start: 20211004
  5. IDELVION [Suspect]
     Active Substance: COAGULATION FACTOR IX RECOMBINANT HUMAN
     Dosage: 50 U/KG
     Route: 042
  6. IDELVION [Suspect]
     Active Substance: COAGULATION FACTOR IX RECOMBINANT HUMAN
     Dosage: 50 U/KG
     Route: 042

REACTIONS (6)
  - Haemorrhage [Recovered/Resolved]
  - Treatment noncompliance [Recovered/Resolved]
  - Haemarthrosis [Recovered/Resolved]
  - Treatment noncompliance [Recovered/Resolved]
  - Haemorrhage [Recovered/Resolved]
  - Treatment noncompliance [Recovered/Resolved]

NARRATIVE: CASE EVENT DATE: 20220208
